FAERS Safety Report 9413791 (Version 1)
Quarter: 2013Q3

REPORT INFORMATION
  Report Type: Spontaneous
  Country: JP (occurrence: None)
  Receive Date: 20130717
  Receipt Date: 20130717
  Transmission Date: 20140515
  Serious: Yes (Life-Threatening, Hospitalization, Other)
  Sender: FDA-Public Use
  Company Number: 2012-0498

PATIENT
  Age: 74 Year
  Sex: Female
  Weight: 44.4 kg

DRUGS (13)
  1. CARFILZOMIB (CARFILZOMIB) (20 MILLIGRAM(S)/SQ.METER, INJECTION FOR INFUSION) (CARFILZOMIB) [Suspect]
     Indication: PLASMA CELL MYELOMA
     Route: 042
     Dates: start: 20120523, end: 20120524
  2. ZOVIRAX (ACICLOVIR) (ACICLOVIR) [Concomitant]
  3. TAKEPRON OD (LANSOPRAZOLE) (TABLET) (LANSOPRAZOLE) [Concomitant]
  4. DALACIN (CLINDAMYCIN HYDROCHLORIDE) (CLINDAMYCIN HYDROCHLORIDE) [Concomitant]
  5. BIOFERMIN-R (STREPTOCOCCUS FAECALIS) (STREPTOCOCCUS FAECALIS) [Concomitant]
  6. ITRIZOLE (ITRACONAZOLE) (ITACONAZOLE) [Concomitant]
  7. BAKTAR (SULFAMETHOXAZOLE) (SULFAMETHOXAZOLE) [Concomitant]
  8. SLOW-K (POTASSIUM CHLORIDE) (POTASSIUM CHLORIDE) [Concomitant]
  9. VEGAMOX (MOXIFLOXACIN HYDROCHLORIDE) (MOXIFLOXACIN HYDROCHLORIDE) [Concomitant]
  10. CATLEP (INDOMETACIN) (INDOMETACIN) [Concomitant]
  11. LOXONIN (LOXOPROFEN SODIUM0 (LOXOPROFEN SODIUM) [Concomitant]
  12. SELBEX (TEPRENONE) (TEPRENONE) [Concomitant]
  13. ZYLORIC (ALLOPURINOL) (ALLOPURINOL) [Concomitant]

REACTIONS (33)
  - Pyrexia [None]
  - C-reactive protein increased [None]
  - Urine output decreased [None]
  - Cardiomegaly [None]
  - Discomfort [None]
  - Respiratory disorder [None]
  - Renal disorder [None]
  - Oxygen saturation decreased [None]
  - Back pain [None]
  - Thrombotic microangiopathy [None]
  - Cardiomyopathy [None]
  - Drug-induced liver injury [None]
  - Acute respiratory distress syndrome [None]
  - Depressed level of consciousness [None]
  - Cardiac arrest [None]
  - Disseminated intravascular coagulation [None]
  - Lactic acidosis [None]
  - Renal failure acute [None]
  - Pulmonary congestion [None]
  - Electrocardiogram ST segment depression [None]
  - Stress cardiomyopathy [None]
  - Cardiac failure [None]
  - Pulmonary oedema [None]
  - Cerebral haemorrhage [None]
  - Subarachnoid haemorrhage [None]
  - Quadriplegia [None]
  - Stomatitis [None]
  - Sputum culture positive [None]
  - Pseudomonas infection [None]
  - Staphylococcal infection [None]
  - Haemodialysis [None]
  - Neuropathy peripheral [None]
  - Intestinal ischaemia [None]
